FAERS Safety Report 7105554-2 (Version None)
Quarter: 2010Q4

REPORT INFORMATION
  Report Type: 
  Country: None (occurrence: None)
  Receive Date: 20101116
  Receipt Date: 20101109
  Transmission Date: 20110411
  Serious: Yes (Hospitalization)
  Sender: FDA-Public Use
  Company Number: FR-ROCHE-740399

PATIENT
  Age: 71 Year
  Sex: Female

DRUGS (2)
  1. AVASTIN [Suspect]
     Dosage: FREQ: DEPENDING ON CYCLE
     Route: 042
     Dates: start: 20100809, end: 20100810
  2. TAXOTERE [Concomitant]

REACTIONS (3)
  - APLASIA [None]
  - COLITIS [None]
  - DIARRHOEA [None]
